FAERS Safety Report 12413289 (Version 2)
Quarter: 2016Q2

REPORT INFORMATION
  Report Type: Spontaneous
  Country: US (occurrence: US)
  Receive Date: 20160527
  Receipt Date: 20160608
  Transmission Date: 20160815
  Serious: Yes (Other)
  Sender: FDA-Public Use
  Company Number: US-SUNOVION-2016SUN001292

PATIENT
  Sex: Female

DRUGS (3)
  1. LUNESTA [Suspect]
     Active Substance: ESZOPICLONE
     Indication: INSOMNIA
     Dosage: UNK
     Route: 048
  2. ESZOPICLONE. [Suspect]
     Active Substance: ESZOPICLONE
     Indication: INSOMNIA
     Dosage: UNK
     Route: 048
  3. AMBIEN [Concomitant]
     Active Substance: ZOLPIDEM TARTRATE
     Indication: INSOMNIA
     Dosage: UNK

REACTIONS (4)
  - Hypersensitivity [Recovered/Resolved]
  - Palpitations [Recovered/Resolved]
  - Nervous system disorder [Not Recovered/Not Resolved]
  - Blood pressure increased [Recovered/Resolved]
